FAERS Safety Report 8889425 (Version 1)
Quarter: 2012Q4

REPORT INFORMATION
  Report Type: Spontaneous
  Country: US (occurrence: None)
  Receive Date: 20121102
  Receipt Date: 20121102
  Transmission Date: 20130627
  Serious: Yes (Other)
  Sender: FDA-Public Use
  Company Number: None

PATIENT
  Age: 16 Year
  Sex: Female
  Weight: 53.8 kg

DRUGS (4)
  1. DAUNORUBICIN [Suspect]
     Route: 042
  2. DAUNORUBICIN [Concomitant]
  3. ONDANSETRON [Concomitant]
  4. MICAFUNGIN [Concomitant]

REACTIONS (1)
  - Electrocardiogram QT prolonged [None]
